FAERS Safety Report 11842168 (Version 1)
Quarter: 2015Q4

REPORT INFORMATION
  Report Type: Spontaneous
  Country: US (occurrence: US)
  Receive Date: 20151216
  Receipt Date: 20151216
  Transmission Date: 20160305
  Serious: No
  Sender: FDA-Public Use
  Company Number: US-RB-074224-15

PATIENT
  Age: 48 Year
  Sex: Female

DRUGS (3)
  1. DELSYM [Suspect]
     Active Substance: DEXTROMETHORPHAN
     Indication: COUGH
     Dosage: 10ML. ,FREQUENCY UNK
     Route: 065
     Dates: start: 20150205
  2. DELSYM [Suspect]
     Active Substance: DEXTROMETHORPHAN
     Dosage: 2.50ML. ,FREQUENCY UNK
     Route: 065
     Dates: start: 20150206
  3. DELSYM [Suspect]
     Active Substance: DEXTROMETHORPHAN
     Indication: COUGH
     Dosage: 2.50ML. ,FREQUENCY UNK
     Route: 065
     Dates: start: 20150204

REACTIONS (10)
  - Musculoskeletal stiffness [Recovered/Resolved]
  - Tinnitus [None]
  - Feeling abnormal [Recovered/Resolved]
  - Panic attack [None]
  - Dizziness [Recovered/Resolved]
  - Head discomfort [Recovered/Resolved]
  - Drug hypersensitivity [None]
  - Hyperventilation [Recovered/Resolved]
  - Dyspnoea [Recovered/Resolved]
  - Hypoaesthesia [Recovered/Resolved]

NARRATIVE: CASE EVENT DATE: 20150205
